FAERS Safety Report 6406504-4 (Version None)
Quarter: 2009Q4

REPORT INFORMATION
  Report Type: 
  Country: None (occurrence: None)
  Receive Date: 20091014
  Receipt Date: 20091001
  Transmission Date: 20100525
  Serious: Yes (Hospitalization)
  Sender: FDA-Public Use
  Company Number: 8052592

PATIENT
  Age: 77 Year
  Sex: Female
  Weight: 78.2 kg

DRUGS (9)
  1. CERTOLIZUMAB PEGOL [Suspect]
     Indication: RHEUMATOID ARTHRITIS
     Dosage: 400 MG 1/2W SC
     Route: 058
     Dates: start: 20090226
  2. PLACEBO [Suspect]
     Indication: RHEUMATOID ARTHRITIS
     Dosage: 400 MG 12W SC
     Route: 058
     Dates: start: 20090226
  3. METHOTREXATE [Concomitant]
  4. TYLENOL (CAPLET) [Concomitant]
  5. PREDNISONE TAB [Concomitant]
  6. CYMBALTA [Concomitant]
  7. TRAZODONE [Concomitant]
  8. FOLIC ACID [Concomitant]
  9. SYNTHROID [Concomitant]

REACTIONS (8)
  - DECREASED APPETITE [None]
  - GASTROENTERITIS VIRAL [None]
  - HAEMATOCRIT DECREASED [None]
  - HAEMOGLOBIN DECREASED [None]
  - LUNG CONSOLIDATION [None]
  - PNEUMONIA [None]
  - TUBERCULOSIS [None]
  - URINE ODOUR ABNORMAL [None]
